FAERS Safety Report 7335060-1 (Version None)
Quarter: 2011Q1

REPORT INFORMATION
  Report Type: 
  Country: None (occurrence: None)
  Receive Date: 20110302
  Receipt Date: 20110302
  Transmission Date: 20110831
  Serious: No
  Sender: FDA-Public Use
  Company Number: None

PATIENT
  Sex: Female
  Weight: 72.5755 kg

DRUGS (2)
  1. SAVELLA [Suspect]
     Dosage: FEB 16-25 MG TOOK 1X HURT SO BAD STOPPED
  2. SAVELLA [Suspect]
     Indication: PAIN IN EXTREMITY
     Dosage: FEB 11 12.5 MG FEB 12-13-14-15 12.5 1 X DAY PER DR ORDER ORAL
     Route: 048
     Dates: start: 20110211, end: 20110216

REACTIONS (12)
  - PAIN [None]
  - MYALGIA [None]
  - ANGER [None]
  - IMPAIRED DRIVING ABILITY [None]
  - FEELING HOT [None]
  - NAUSEA [None]
  - SUICIDAL IDEATION [None]
  - AGGRESSION [None]
  - PAIN IN EXTREMITY [None]
  - HYPERHIDROSIS [None]
  - FEELING COLD [None]
  - ARTHRALGIA [None]
